FAERS Safety Report 5433313-5 (Version None)
Quarter: 2007Q3

REPORT INFORMATION
  Report Type: 
  Country: None (occurrence: None)
  Receive Date: 20070828
  Receipt Date: 20070828
  Transmission Date: 20080115
  Serious: No
  Sender: FDA-Public Use
  Company Number: None

PATIENT
  Age: 46 Year
  Sex: Female
  Weight: 68.0396 kg

DRUGS (1)
  1. PROVENTIL-HFA [Suspect]
     Indication: ASTHMA
     Dosage: 90 MCG PRN OTHER
     Route: 050
     Dates: start: 20070507, end: 20070820

REACTIONS (2)
  - DEVICE MALFUNCTION [None]
  - DRUG INEFFECTIVE [None]
